FAERS Safety Report 8594591 (Version 2)
Quarter: 2012Q4

REPORT INFORMATION
  Report Type: 
  Country: US (occurrence: US)
  Receive Date: 20120604
  Receipt Date: 20120911
  Transmission Date: 20130627
  Serious: Yes (Congenital Anomaly)
  Sender: FDA-Public Use
  Company Number: US-GLAXOSMITHKLINE-A0979854A

PATIENT
  Age: 0 Year
  Sex: Male

DRUGS (7)
  1. PAXIL [Suspect]
     Indication: PRODUCT USED FOR UNKNOWN INDICATION
     Dosage: 20MG Per day
     Route: 064
  2. IRON [Concomitant]
     Route: 064
  3. PRENATAL VITAMINS [Concomitant]
     Route: 064
  4. BETAMETHASONE [Concomitant]
     Route: 064
  5. NAPROXEN [Concomitant]
     Route: 064
  6. IRON [Concomitant]
     Route: 064
  7. LORTAB [Concomitant]
     Route: 064

REACTIONS (3)
  - Atrial septal defect [Unknown]
  - Congenital pulmonary hypertension [Unknown]
  - Foetal exposure during pregnancy [Unknown]
